FAERS Safety Report 8905462 (Version 1)
Quarter: 2012Q4

REPORT INFORMATION
  Report Type: 
  Country: BA (occurrence: BA)
  Receive Date: 20121111
  Receipt Date: 20121111
  Transmission Date: 20130627
  Serious: Yes (Hospitalization)
  Sender: FDA-Public Use
  Company Number: PHHY2012BA103397

PATIENT

DRUGS (1)
  1. TASIGNA [Suspect]
     Indication: CHRONIC MYELOID LEUKAEMIA
     Dosage: 300 mg, BID
     Dates: start: 20120326

REACTIONS (4)
  - Purpura [Recovered/Resolved]
  - Bone marrow failure [Recovered/Resolved with Sequelae]
  - Neutropenia [Recovered/Resolved with Sequelae]
  - Thrombocytopenia [Recovered/Resolved with Sequelae]
